FAERS Safety Report 9755039 (Version 3)
Quarter: 2014Q1

REPORT INFORMATION
  Report Type: Spontaneous
  Country: US (occurrence: US)
  Receive Date: 20131213
  Receipt Date: 20140205
  Transmission Date: 20141002
  Serious: Yes (Hospitalization)
  Sender: FDA-Public Use
  Company Number: US-PFIZER INC-2013357053

PATIENT
  Age: 58 Year
  Sex: Female
  Weight: 90.7 kg

DRUGS (15)
  1. LYRICA [Suspect]
     Indication: FIBROMYALGIA
     Dosage: 150 MG, 2X/DAY (AM:1, PM:1
     Route: 048
  2. LYRICA [Suspect]
     Indication: NEUROPATHY PERIPHERAL
  3. SERTRALINE [Concomitant]
     Dosage: 100 MG, 1X/DAY (PM:1)
  4. CYCLOBENZAPRINE [Concomitant]
     Dosage: 10 MG, 3X/DAY (AM:1, NOON:1, PM:1)
  5. TRAMADOL [Concomitant]
     Dosage: 50 MG, 3X/DAY (AM:1, NOON:1, PM:1)
  6. VALIUM [Concomitant]
     Dosage: 5 MG, AS NEEDED
  7. FLUTICASON [Concomitant]
     Dosage: 50 UG, UNK
  8. VENTOLIN [Concomitant]
     Dosage: UNK, AS NEEDED
  9. MELOXICAM [Concomitant]
     Dosage: 7.5 MG, AS NEEDED (BED: 1)
  10. MAXALT [Concomitant]
     Dosage: UNK
  11. ASCOMP [Concomitant]
     Dosage: UNK (1-2 Q 4-6HRS PRN)
  12. DICYCLOMINE [Concomitant]
     Dosage: 10 MG, 3X/DAY (AM:1, NOON:1, PM:1)
  13. VITAMIN D [Concomitant]
     Dosage: 50000 UG, 1X/DAY (AM:1)
  14. PRILOSEC [Concomitant]
     Dosage: 20 MG, AS NEEDED (AM:1)
  15. OXYCODONE [Concomitant]
     Dosage: UNK

REACTIONS (1)
  - Back disorder [Unknown]
